FAERS Safety Report 16535763 (Version 1)
Quarter: 2019Q3

REPORT INFORMATION
  Report Type: Spontaneous
  Country: IT (occurrence: IT)
  Receive Date: 20190705
  Receipt Date: 20190705
  Transmission Date: 20191004
  Serious: Yes (Other)
  Sender: FDA-Public Use
  Company Number: IT-LUPIN PHARMACEUTICALS INC.-2019-02661

PATIENT
  Age: 10 Year

DRUGS (1)
  1. METRONIDAZOLE. [Suspect]
     Active Substance: METRONIDAZOLE
     Indication: HYPERGLYCINAEMIA
     Dosage: 10 MILLIGRAM/KILOGRAM, QD, 3 WEEK/MONTH
     Route: 065

REACTIONS (1)
  - Neuropathy peripheral [Unknown]
